FAERS Safety Report 5386171-1 (Version None)
Quarter: 2007Q3

REPORT INFORMATION
  Report Type: 
  Country: None (occurrence: None)
  Receive Date: 20070713
  Receipt Date: 20070704
  Transmission Date: 20080115
  Serious: Yes (Other)
  Sender: FDA-Public Use
  Company Number: CA-JNJFOC-20070403408

PATIENT
  Sex: Female

DRUGS (12)
  1. REMICADE [Suspect]
     Route: 042
  2. REMICADE [Suspect]
     Indication: RHEUMATOID ARTHRITIS
     Route: 042
  3. MELOXICAM [Concomitant]
     Indication: RHEUMATOID ARTHRITIS
  4. METHOTREXATE [Concomitant]
     Indication: RHEUMATOID ARTHRITIS
  5. PANTALOC [Concomitant]
     Indication: GASTROINTESTINAL DISORDER THERAPY
  6. LEUCOVORIN CALCIUM [Concomitant]
     Indication: PROPHYLAXIS
     Route: 048
  7. MULTI-VITAMIN [Concomitant]
     Route: 048
  8. ASCORBIC ACID [Concomitant]
     Indication: NUTRITIONAL SUPPORT
  9. VITAMIN E [Concomitant]
     Indication: NUTRITIONAL SUPPORT
     Route: 048
  10. GLUCOSAMINE [Concomitant]
     Indication: PHYTOTHERAPY
     Route: 048
  11. MSM [Concomitant]
     Indication: PHYTOTHERAPY
     Route: 048
  12. PREDNISONE [Concomitant]

REACTIONS (4)
  - DEHYDRATION [None]
  - DIARRHOEA [None]
  - SYNCOPE [None]
  - VOMITING [None]
